FAERS Safety Report 6029329-0 (Version None)
Quarter: 2009Q1

REPORT INFORMATION
  Report Type: 
  Country: None (occurrence: None)
  Receive Date: 20090102
  Receipt Date: 20081212
  Transmission Date: 20090719
  Serious: Yes (Other)
  Sender: FDA-Public Use
  Company Number: 2008-188930-NL

PATIENT
  Age: 22 Year
  Sex: Female
  Weight: 73 kg

DRUGS (1)
  1. DEXAMETHASONE TAB [Suspect]

REACTIONS (11)
  - ANXIETY [None]
  - CEREBRAL HAEMORRHAGE [None]
  - CEREBRAL INFARCTION [None]
  - DEPRESSION [None]
  - DIABETES MELLITUS [None]
  - GRAND MAL CONVULSION [None]
  - ISCHAEMIC STROKE [None]
  - MENSTRUATION IRREGULAR [None]
  - MIGRAINE [None]
  - MULTIPLE INJURIES [None]
  - SUPERIOR SAGITTAL SINUS THROMBOSIS [None]
